FAERS Safety Report 17370265 (Version 1)
Quarter: 2020Q1

REPORT INFORMATION
  Report Type: Spontaneous
  Country: JP (occurrence: JP)
  Receive Date: 20200205
  Receipt Date: 20200205
  Transmission Date: 20200409
  Serious: Yes (Other)
  Sender: FDA-Public Use
  Company Number: JP-SAKK-2020SA011177AA

PATIENT
  Age: 44 Year
  Sex: Male

DRUGS (2)
  1. DUPIXENT [Suspect]
     Active Substance: DUPILUMAB
     Indication: DERMATITIS ATOPIC
     Dosage: 300 MG, QOW
     Route: 058
  2. DUPIXENT [Suspect]
     Active Substance: DUPILUMAB
     Dosage: 600 MG, 1X
     Route: 058
     Dates: start: 201805, end: 201805

REACTIONS (11)
  - Eye pruritus [Recovered/Resolved]
  - Cough [Recovered/Resolved]
  - Molluscum contagiosum [Recovered/Resolved]
  - Rash [Recovered/Resolved]
  - Ocular hyperaemia [Recovered/Resolved]
  - Headache [Recovered/Resolved]
  - Conjunctivitis allergic [Recovered/Resolved]
  - Kaposi^s varicelliform eruption [Recovered/Resolved]
  - Asthma [Recovered/Resolved]
  - Herpes simplex [Recovered/Resolved]
  - Nasopharyngitis [Recovered/Resolved]

NARRATIVE: CASE EVENT DATE: 201808
